FAERS Safety Report 24402510 (Version 2)
Quarter: 2025Q3

REPORT INFORMATION
  Report Type: Report from Study
  Country: CA (occurrence: CA)
  Receive Date: 20241007
  Receipt Date: 20250721
  Transmission Date: 20251021
  Serious: Yes (Other)
  Sender: CSL BEHRING
  Company Number: CA-BEH-2024172284

PATIENT
  Age: 66 Year
  Sex: Male
  Weight: 130.2 kg

DRUGS (18)
  1. HIZENTRA [Suspect]
     Active Substance: HUMAN IMMUNOGLOBULIN G
     Indication: Chronic inflammatory demyelinating polyradiculoneuropathy
     Dosage: 46 G, QW (22G ALT WITH 24 G)
     Route: 065
     Dates: start: 20210324
  2. HIZENTRA [Suspect]
     Active Substance: HUMAN IMMUNOGLOBULIN G
     Route: 058
  3. HIZENTRA [Suspect]
     Active Substance: HUMAN IMMUNOGLOBULIN G
     Dosage: 46 G, QW
     Route: 058
     Dates: start: 20210523
  4. HIZENTRA [Suspect]
     Active Substance: HUMAN IMMUNOGLOBULIN G
     Dosage: 46 G, QW
     Route: 058
  5. HIZENTRA [Suspect]
     Active Substance: HUMAN IMMUNOGLOBULIN G
     Route: 058
  6. HIZENTRA [Suspect]
     Active Substance: HUMAN IMMUNOGLOBULIN G
     Route: 065
     Dates: start: 20240520
  7. HIZENTRA [Suspect]
     Active Substance: HUMAN IMMUNOGLOBULIN G
     Route: 065
     Dates: start: 20240527
  8. HIZENTRA [Suspect]
     Active Substance: HUMAN IMMUNOGLOBULIN G
     Route: 065
  9. HIZENTRA [Suspect]
     Active Substance: HUMAN IMMUNOGLOBULIN G
     Route: 065
  10. HIZENTRA [Suspect]
     Active Substance: HUMAN IMMUNOGLOBULIN G
     Route: 065
  11. HIZENTRA [Suspect]
     Active Substance: HUMAN IMMUNOGLOBULIN G
     Route: 065
  12. HIZENTRA [Suspect]
     Active Substance: HUMAN IMMUNOGLOBULIN G
     Dosage: 46 G, QW (22G ALT WITH 24 G)
     Route: 065
     Dates: start: 20210324
  13. HIZENTRA [Suspect]
     Active Substance: HUMAN IMMUNOGLOBULIN G
     Dosage: 46 G, QW (22G ALT WITH 24 G)
     Route: 065
     Dates: start: 20210324
  14. HIZENTRA [Suspect]
     Active Substance: HUMAN IMMUNOGLOBULIN G
     Dosage: 46 G, QW (22G ALT WITH 24 G)
     Route: 065
  15. HIZENTRA [Suspect]
     Active Substance: HUMAN IMMUNOGLOBULIN G
     Dosage: 46 G, QW (22G ALT WITH 24 G)
     Route: 065
     Dates: start: 20240923
  16. HIZENTRA [Suspect]
     Active Substance: HUMAN IMMUNOGLOBULIN G
     Dosage: 46 G, QW (22G ALT WITH 24 G)
     Route: 065
     Dates: start: 20240927
  17. OZEMPIC [Concomitant]
     Active Substance: SEMAGLUTIDE
     Dosage: 0.25 MG, QW
  18. LASIX [Concomitant]
     Active Substance: FUROSEMIDE

REACTIONS (55)
  - Angina pectoris [Unknown]
  - Macular degeneration [Unknown]
  - Visual impairment [Unknown]
  - Fluid retention [Unknown]
  - Poor quality sleep [Unknown]
  - Nocturia [Unknown]
  - Dizziness [Unknown]
  - Feeling abnormal [Unknown]
  - Pain in extremity [Unknown]
  - Fatigue [Unknown]
  - Chest pain [Unknown]
  - Poor quality sleep [Unknown]
  - Pain [Not Recovered/Not Resolved]
  - Blood pressure systolic increased [Unknown]
  - Fatigue [Not Recovered/Not Resolved]
  - Somnolence [Unknown]
  - Constipation [Recovering/Resolving]
  - Diarrhoea [Recovering/Resolving]
  - Insomnia [Unknown]
  - Pain in extremity [Unknown]
  - Pain [Unknown]
  - Stress [Unknown]
  - Therapy interrupted [Unknown]
  - Insomnia [Unknown]
  - Dyspnoea [Unknown]
  - Joint swelling [Unknown]
  - Pain in extremity [Unknown]
  - Pain in extremity [Unknown]
  - Insomnia [Unknown]
  - Blood pressure increased [Unknown]
  - Pain [Not Recovered/Not Resolved]
  - Insomnia [Not Recovered/Not Resolved]
  - Vomiting [Not Recovered/Not Resolved]
  - Weight increased [Not Recovered/Not Resolved]
  - Blood pressure increased [Unknown]
  - Fatigue [Unknown]
  - Pain in extremity [Recovering/Resolving]
  - Anxiety [Not Recovered/Not Resolved]
  - Nervousness [Unknown]
  - Malaise [Unknown]
  - Feeling abnormal [Unknown]
  - Eye pain [Unknown]
  - Blood pressure increased [Unknown]
  - Pain in extremity [Unknown]
  - Insomnia [Unknown]
  - Localised infection [Unknown]
  - Asthenopia [Unknown]
  - Pain [Unknown]
  - Headache [Unknown]
  - Dizziness [Unknown]
  - Cellulitis [Unknown]
  - Rash [Unknown]
  - Skin odour abnormal [Unknown]
  - Localised infection [Unknown]
  - Peripheral swelling [Unknown]

NARRATIVE: CASE EVENT DATE: 20240501
